FAERS Safety Report 8882480 (Version 4)
Quarter: 2013Q2

REPORT INFORMATION
  Report Type: Spontaneous
  Country: US (occurrence: US)
  Receive Date: 20121103
  Receipt Date: 20130601
  Transmission Date: 20140414
  Serious: No
  Sender: FDA-Public Use
  Company Number: US-009507513-1210USA008754

PATIENT
  Sex: Female

DRUGS (1)
  1. IMPLANON [Suspect]
     Dosage: UNK
     Dates: start: 20120924

REACTIONS (1)
  - Implant site infection [Recovered/Resolved]
